FAERS Safety Report 6567030-5 (Version None)
Quarter: 2010Q1

REPORT INFORMATION
  Report Type: 
  Country: None (occurrence: None)
  Receive Date: 20100202
  Receipt Date: 20100127
  Transmission Date: 20100710
  Serious: Yes (Hospitalization)
  Sender: FDA-Public Use
  Company Number: GXKR2009DE08058

PATIENT
  Age: 69 Year
  Sex: Male
  Weight: 176 kg

DRUGS (9)
  1. PARACETAMOL (NGX) [Suspect]
     Indication: PROCEDURAL PAIN
     Dosage: 500 MG, TID
     Route: 048
     Dates: start: 20090226, end: 20090227
  2. RAMIPRIL [Suspect]
     Indication: HYPERTENSION
     Dosage: UNK
     Route: 048
     Dates: start: 20000101
  3. OMEP (NGX) [Suspect]
     Indication: PROPHYLAXIS AGAINST GASTROINTESTINAL ULCER
     Dosage: 40 MG, QD
     Dates: start: 20090225
  4. BUPRENORPHINE [Concomitant]
     Indication: PROCEDURAL PAIN
  5. IBUPROFEN (NGX) [Suspect]
     Indication: OSTEOARTHRITIS
     Dosage: 600 MG, QD
     Route: 048
     Dates: start: 20070101, end: 20090220
  6. FLOTRIN [Concomitant]
  7. CEFUROXIME [Concomitant]
  8. BERLOSIN [Concomitant]
  9. VOLTAREN [Suspect]
     Indication: PROCEDURAL PAIN
     Dosage: 75 MG, BID
     Route: 048
     Dates: start: 20090225, end: 20090227

REACTIONS (1)
  - PANCREATITIS [None]
